FAERS Safety Report 20868203 (Version 1)
Quarter: 2022Q2

REPORT INFORMATION
  Report Type: Spontaneous
  Country: US (occurrence: None)
  Receive Date: 20220524
  Receipt Date: 20220524
  Transmission Date: 20220720
  Serious: No
  Sender: FDA-Public Use
  Company Number: None

PATIENT
  Age: 49 Year
  Sex: Female
  Weight: 84.82 kg

DRUGS (33)
  1. VERZENIO [Suspect]
     Active Substance: ABEMACICLIB
     Indication: Breast cancer female
     Dosage: FREQUENCY : TWICE A DAY;?
     Route: 048
     Dates: start: 20220216
  2. BERBERINE [Concomitant]
     Active Substance: BERBERINE
  3. BIOASTIN [Concomitant]
  4. CALCIUM [Concomitant]
     Active Substance: CALCIUM
  5. D-GLUCARATE [Concomitant]
  6. COENZYME Q10 [Concomitant]
     Active Substance: DIETARY SUPPLEMENT\UBIDECARENONE
  7. CURCU-ESSENTIALS [Concomitant]
  8. D-ESSENTIALS [Concomitant]
  9. DIM [Concomitant]
  10. FENBENDAZOLE [Concomitant]
     Active Substance: FENBENDAZOLE
  11. TEA [Concomitant]
     Active Substance: TEA LEAF
  12. HONOPURE [Concomitant]
  13. DIETARY SUPPLEMENT [Concomitant]
     Active Substance: DIETARY SUPPLEMENT
  14. IVERMECTIN [Concomitant]
     Active Substance: IVERMECTIN
  15. LETROZOLE [Concomitant]
     Active Substance: LETROZOLE
  16. LEVOCETIRIZINE [Concomitant]
     Active Substance: LEVOCETIRIZINE
  17. LIPOIC [Concomitant]
  18. NALTREXONE [Concomitant]
     Active Substance: NALTREXONE
  19. LUPRON [Concomitant]
     Active Substance: LEUPROLIDE ACETATE
  20. MEBENDAZOLE [Concomitant]
     Active Substance: MEBENDAZOLE
  21. MELATONIN [Concomitant]
     Active Substance: MELATONIN
  22. METFORMIN [Concomitant]
     Active Substance: METFORMIN HYDROCHLORIDE
  23. METHYL GUARD VITAMIN B COMPLEX [Concomitant]
  24. DIETARY SUPPLEMENT [Concomitant]
     Active Substance: DIETARY SUPPLEMENT
  25. NUTRI [Concomitant]
  26. PROEPA [Concomitant]
  27. QUERCETIN [Concomitant]
     Active Substance: QUERCETIN
  28. RECLAST [Concomitant]
     Active Substance: ZOLEDRONIC ACID
  29. RESVERACEL [Concomitant]
  30. SAFFRON [Concomitant]
     Active Substance: SAFFRON
  31. SPERMIDINE [Concomitant]
     Active Substance: SPERMIDINE
  32. VITAMIN C [Concomitant]
     Active Substance: ASCORBIC ACID
  33. ZINC [Concomitant]
     Active Substance: ZINC

REACTIONS (1)
  - COVID-19 [None]
